FAERS Safety Report 5315128-1 (Version None)
Quarter: 2007Q2

REPORT INFORMATION
  Report Type: 
  Country: None (occurrence: None)
  Receive Date: 20070502
  Receipt Date: 20070424
  Transmission Date: 20071010
  Serious: Yes (Death)
  Sender: FDA-Public Use
  Company Number: ES-GENENTECH-214943

PATIENT
  Sex: Male
  Weight: 114 kg

DRUGS (1)
  1. BEVACIZUMAB [Suspect]
     Indication: COLORECTAL CANCER METASTATIC
     Dosage: 855 MG, Q3W
     Route: 042
     Dates: start: 20050228, end: 20050322

REACTIONS (1)
  - MYOCARDIAL INFARCTION [None]
